FAERS Safety Report 5882087-2 (Version None)
Quarter: 2008Q3

REPORT INFORMATION
  Report Type: 
  Country: None (occurrence: None)
  Receive Date: 20080912
  Receipt Date: 20080724
  Transmission Date: 20090109
  Serious: No
  Sender: FDA-Public Use
  Company Number: US-ABBOTT-08P-163-0465444-00

PATIENT
  Sex: Male

DRUGS (6)
  1. HUMIRA [Suspect]
     Indication: PSORIATIC ARTHROPATHY
     Route: 058
     Dates: start: 20080606
  2. HUMIRA [Suspect]
     Route: 058
     Dates: start: 20080728
  3. AUGMENTIN '125' [Suspect]
     Indication: PYREXIA
  4. AUGMENTIN '125' [Suspect]
     Indication: INFLUENZA LIKE ILLNESS
  5. AUGMENTIN '125' [Suspect]
     Indication: PAIN
  6. METHOTREXATE [Concomitant]
     Indication: DRUG USE FOR UNKNOWN INDICATION
     Route: 048

REACTIONS (4)
  - DIARRHOEA [None]
  - INFLUENZA LIKE ILLNESS [None]
  - PAIN [None]
  - PYREXIA [None]
